FAERS Safety Report 7114430-0 (Version None)
Quarter: 2010Q4

REPORT INFORMATION
  Report Type: 
  Country: None (occurrence: None)
  Receive Date: 20101119
  Receipt Date: 20101109
  Transmission Date: 20110411
  Serious: Yes (Hospitalization)
  Sender: FDA-Public Use
  Company Number: US-AMGEN-USACT2010003823

PATIENT
  Sex: Male
  Weight: 90.7 kg

DRUGS (4)
  1. PANITUMUMAB [Suspect]
     Indication: PANCREATIC CARCINOMA METASTATIC
     Dosage: 4 MG/KG, UNK
     Route: 042
     Dates: start: 20100318, end: 20101014
  2. TARCEVA [Suspect]
     Dosage: 100 MG, UNK
     Route: 048
     Dates: start: 20100318, end: 20101027
  3. GEMCITABINE [Suspect]
     Dosage: 1000 MG/M2, QWK
     Route: 042
     Dates: start: 20100318, end: 20101014
  4. CLINDAMYCIN [Concomitant]

REACTIONS (10)
  - FATIGUE [None]
  - HAEMOGLOBIN DECREASED [None]
  - HAEMOLYTIC URAEMIC SYNDROME [None]
  - HYPERTENSION [None]
  - PLATELET COUNT DECREASED [None]
  - PROTEINURIA [None]
  - PYREXIA [None]
  - THROMBOTIC MICROANGIOPATHY [None]
  - THROMBOTIC THROMBOCYTOPENIC PURPURA [None]
  - WEIGHT INCREASED [None]
